FAERS Safety Report 23506408 (Version 1)
Quarter: 2024Q1

REPORT INFORMATION
  Report Type: Spontaneous
  Country: US (occurrence: None)
  Receive Date: 20240208
  Receipt Date: 20240208
  Transmission Date: 20240410
  Serious: Yes (Hospitalization)
  Sender: FDA-Public Use
  Company Number: None

PATIENT
  Sex: Male

DRUGS (2)
  1. TREMFYA [Suspect]
     Active Substance: GUSELKUMAB
     Indication: Psoriasis
     Dosage: 100MG EVERY 8 WEEKS UNDER THE SKIN?
     Route: 058
     Dates: start: 202102
  2. CEFAZOLIN [Concomitant]
     Active Substance: CEFAZOLIN

REACTIONS (3)
  - Sepsis [None]
  - Staphylococcal infection [None]
  - Pyelonephritis [None]
